FAERS Safety Report 16636945 (Version 1)
Quarter: 2019Q3

REPORT INFORMATION
  Report Type: Spontaneous
  Country: US (occurrence: US)
  Receive Date: 20190613
  Receipt Date: 20190613
  Transmission Date: 20191004
  Serious: Yes (Other)
  Sender: FDA-Public Use
  Company Number: None

PATIENT
  Age: 64 Year
  Sex: Female
  Weight: 108.86 kg

DRUGS (18)
  1. TUMS [Concomitant]
     Active Substance: CALCIUM CARBONATE
  2. ONE A DAY VITAMINS [Concomitant]
     Active Substance: VITAMINS
  3. GAMUNEX-C [Suspect]
     Active Substance: HUMAN IMMUNOGLOBULIN G
     Indication: IMMUNE SYSTEM DISORDER
     Dosage: ?          QUANTITY:10 % PERCENT;?
     Route: 042
     Dates: start: 20180315, end: 20180413
  4. ANACID [Concomitant]
  5. SUCRAL FATE [Concomitant]
  6. RANITIDINE. [Concomitant]
     Active Substance: RANITIDINE
  7. DEDYMA COUGH MEDS [Concomitant]
  8. VAGIFEM [Concomitant]
     Active Substance: ESTRADIOL
  9. ALIGN [Concomitant]
     Active Substance: BIFIDOBACTERIUM LONGUM SUBSP. INFANTIS
  10. PROBIOTICS DIGESTIVE [Concomitant]
  11. ATORVASTATIN [Concomitant]
     Active Substance: ATORVASTATIN
  12. DAILY VITAMIN. [Concomitant]
  13. FLUTASCASONE [Concomitant]
  14. ACYCLOVI [Concomitant]
  15. CHAMONILE TEA [Concomitant]
  16. PANTROPAZOL [Concomitant]
  17. FAMOTODINE [Concomitant]
  18. CLOTRIMAZOLE. [Concomitant]
     Active Substance: CLOTRIMAZOLE

REACTIONS (11)
  - Cough [None]
  - Throat irritation [None]
  - Infusion related reaction [None]
  - Gastric disorder [None]
  - Congenital cystic kidney disease [None]
  - Oral mucosal blistering [None]
  - Oropharyngeal blistering [None]
  - Chemical burn [None]
  - Chest pain [None]
  - Anxiety [None]
  - Gastritis [None]

NARRATIVE: CASE EVENT DATE: 20180315
